FAERS Safety Report 10872806 (Version 1)
Quarter: 2015Q1

REPORT INFORMATION
  Report Type: Spontaneous
  Country: US (occurrence: None)
  Receive Date: 20150223
  Receipt Date: 20150223
  Transmission Date: 20150721
  Serious: Yes (Death, Life-Threatening, Hospitalization, Disabling)
  Sender: FDA-Public Use
  Company Number: None

PATIENT
  Age: 82 Year
  Sex: Male
  Weight: 103 kg

DRUGS (4)
  1. COUMADIN [Suspect]
     Active Substance: WARFARIN SODIUM
     Indication: PULMONARY EMBOLISM
     Dates: start: 20150119, end: 20150121
  2. ASPRIN [Concomitant]
     Active Substance: ASPIRIN
     Dosage: 5 MG, 1 PILL QD ORAL
     Route: 048
     Dates: start: 20150119, end: 20150121
  3. ENOXAPARIN [Suspect]
     Active Substance: ENOXAPARIN
     Indication: PULMONARY EMBOLISM
     Dosage: 110MG/0.73 ML BID SC
  4. COUMADIN [Suspect]
     Active Substance: WARFARIN SODIUM
     Indication: EMBOLISM VENOUS
     Dates: start: 20150119, end: 20150121

REACTIONS (5)
  - Encephalopathy [None]
  - Clostridium difficile infection [None]
  - Renal tubular necrosis [None]
  - Retroperitoneal haemorrhage [None]
  - Basal ganglia haemorrhage [None]

NARRATIVE: CASE EVENT DATE: 20150123
